FAERS Safety Report 4462033-9 (Version None)
Quarter: 2004Q3

REPORT INFORMATION
  Report Type: 
  Country: None (occurrence: None)
  Receive Date: 20040927
  Receipt Date: 20040927
  Transmission Date: 20050211
  Serious: Yes (Hospitalization)
  Sender: FDA-Public Use
  Company Number: None

PATIENT
  Sex: Female
  Weight: 115.2136 kg

DRUGS (6)
  1. ZOLOFT [Suspect]
     Indication: DEPRESSION
     Dosage: 150 MG DAILY ORAL, 50 MG DAILY ORAL
     Route: 048
     Dates: start: 20000315, end: 20040630
  2. ZOLOFT [Suspect]
     Indication: DRUG WITHDRAWAL SYNDROME
     Dosage: 150 MG DAILY ORAL, 50 MG DAILY ORAL
     Route: 048
     Dates: start: 20000315, end: 20040630
  3. ZOLOFT [Suspect]
     Indication: PREMENSTRUAL SYNDROME
     Dosage: 150 MG DAILY ORAL, 50 MG DAILY ORAL
     Route: 048
     Dates: start: 20000315, end: 20040630
  4. ZOLOFT [Suspect]
     Indication: DEPRESSION
     Dosage: 150 MG DAILY ORAL, 50 MG DAILY ORAL
     Route: 048
     Dates: start: 20040815, end: 20040915
  5. ZOLOFT [Suspect]
     Indication: DRUG WITHDRAWAL SYNDROME
     Dosage: 150 MG DAILY ORAL, 50 MG DAILY ORAL
     Route: 048
     Dates: start: 20040815, end: 20040915
  6. ZOLOFT [Suspect]
     Indication: PREMENSTRUAL SYNDROME
     Dosage: 150 MG DAILY ORAL, 50 MG DAILY ORAL
     Route: 048
     Dates: start: 20040815, end: 20040915

REACTIONS (8)
  - CHEST PAIN [None]
  - DEPRESSION [None]
  - DRUG WITHDRAWAL SYNDROME [None]
  - IRRITABILITY [None]
  - MENSTRUAL DISORDER [None]
  - MOOD ALTERED [None]
  - OEDEMA PERIPHERAL [None]
  - SUICIDAL IDEATION [None]
